FAERS Safety Report 14224084 (Version 1)
Quarter: 2017Q4

REPORT INFORMATION
  Report Type: Spontaneous
  Country: US (occurrence: US)
  Receive Date: 20171125
  Receipt Date: 20171125
  Transmission Date: 20180321
  Serious: No
  Sender: FDA-Public Use
  Company Number: None

PATIENT
  Sex: Male
  Weight: 78.75 kg

DRUGS (8)
  1. FLINTSTONES WITH IRON [Concomitant]
  2. ESOMEPRAZOLE [Suspect]
     Active Substance: ESOMEPRAZOLE
     Indication: GASTROOESOPHAGEAL REFLUX DISEASE
     Dosage: ?          QUANTITY:30 CAPSULE(S);?
     Route: 048
     Dates: start: 20001101, end: 20171116
  3. ATORVASTATIN [Concomitant]
     Active Substance: ATORVASTATIN
  4. VITAMIN D [Suspect]
     Active Substance: CHOLECALCIFEROL
  5. FAMOTIDINE. [Concomitant]
     Active Substance: FAMOTIDINE
  6. TUMS [Concomitant]
     Active Substance: CALCIUM CARBONATE
  7. FISH OIL [Concomitant]
     Active Substance: FISH OIL
  8. TAMSULOSIN [Concomitant]
     Active Substance: TAMSULOSIN

REACTIONS (2)
  - Diarrhoea [None]
  - Therapy non-responder [None]

NARRATIVE: CASE EVENT DATE: 20170201
